FAERS Safety Report 11777693 (Version 3)
Quarter: 2015Q4

REPORT INFORMATION
  Report Type: Spontaneous
  Country: JP (occurrence: JP)
  Receive Date: 20151125
  Receipt Date: 20151230
  Transmission Date: 20160304
  Serious: Yes (Death, Other)
  Sender: FDA-Public Use
  Company Number: JP-TEVA-611631ISR

PATIENT
  Age: 70 Year
  Sex: Male

DRUGS (13)
  1. PREDNISOLONE. [Suspect]
     Active Substance: PREDNISOLONE
     Indication: HISTIOCYTOSIS HAEMATOPHAGIC
     Route: 065
  2. CYCLOSPORINE. [Suspect]
     Active Substance: CYCLOSPORINE
     Indication: HISTIOCYTOSIS HAEMATOPHAGIC
     Route: 065
     Dates: start: 20131221
  3. CYCLOSPORINE. [Suspect]
     Active Substance: CYCLOSPORINE
     Indication: MYELOFIBROSIS
  4. PREDONINE [Suspect]
     Active Substance: PREDNISOLONE\PREDNISOLONE ACETATE\PREDNISOLONE SODIUM SUCCINATE
     Indication: MYELOFIBROSIS
     Dosage: 10 MILLIGRAM DAILY;
     Route: 065
     Dates: start: 20131210
  5. ETOPOSIDE. [Suspect]
     Active Substance: ETOPOSIDE
     Indication: MYELOFIBROSIS
  6. ETOPOSIDE. [Suspect]
     Active Substance: ETOPOSIDE
     Indication: HISTIOCYTOSIS HAEMATOPHAGIC
     Dosage: 200 MILLIGRAM DAILY;
     Route: 065
     Dates: start: 20131225
  7. CEFEPIME [Concomitant]
     Active Substance: CEFEPIME HYDROCHLORIDE
     Indication: INFECTION
     Route: 065
  8. MICAFUNGIN (MCFG) [Suspect]
     Active Substance: MICAFUNGIN
     Indication: PROPHYLAXIS
     Route: 065
  9. LENALIDOMIDE [Concomitant]
     Active Substance: LENALIDOMIDE
     Indication: MYELOFIBROSIS
     Dosage: 10MG
     Route: 065
     Dates: start: 20131210
  10. HYDROXYCARBAMIDE [Concomitant]
     Active Substance: HYDROXYUREA
     Indication: SPLENOMEGALY
     Dosage: 1000 MILLIGRAM DAILY;
     Route: 065
  11. AZACITIDINE. [Concomitant]
     Active Substance: AZACITIDINE
     Indication: SPLENOMEGALY
     Dosage: 100 MILLIGRAM DAILY;
     Route: 065
  12. LIPOSOMAL AMPHOTERICIN B (L-AMB) [Suspect]
     Active Substance: AMPHOTERICIN B
     Indication: SYSTEMIC CANDIDA
     Route: 065
  13. SOL-MELCORT [Suspect]
     Active Substance: METHYLPREDNISOLONE SODIUM SUCCINATE
     Indication: HISTIOCYTOSIS HAEMATOPHAGIC
     Dosage: 500 MILLIGRAM DAILY; STEROID PULSE THERAPY
     Route: 065

REACTIONS (6)
  - Trichosporon infection [Fatal]
  - Febrile neutropenia [Unknown]
  - Nephritis [Fatal]
  - Acute kidney injury [Fatal]
  - Drug ineffective [Unknown]
  - Systemic candida [Unknown]
